FAERS Safety Report 9376147 (Version 1)
Quarter: 2013Q3

REPORT INFORMATION
  Report Type: Report from Study
  Country: US (occurrence: US)
  Receive Date: 20130701
  Receipt Date: 20130701
  Transmission Date: 20140515
  Serious: Yes (Life-Threatening, Hospitalization)
  Sender: FDA-Public Use
  Company Number: US-ROCHE-GNE290031

PATIENT
  Age: 66 Year
  Sex: Female

DRUGS (7)
  1. PLAVIX [Concomitant]
     Indication: HYPOAESTHESIA
     Dosage: 75 MG, QD
     Route: 048
     Dates: start: 200805
  2. SIMVASTATIN [Concomitant]
     Indication: HYPERCHOLESTEROLAEMIA
     Dosage: UNK
     Route: 065
     Dates: start: 200805
  3. AVALIDE [Concomitant]
     Indication: DIABETES MELLITUS
     Dosage: UNK
     Route: 065
     Dates: start: 2005
  4. ASPIRIN [Concomitant]
     Indication: PROPHYLAXIS
     Dosage: UNK
     Route: 065
     Dates: start: 2002
  5. INSULIN [Concomitant]
     Indication: DIABETES MELLITUS
     Dosage: UNK
     Route: 065
     Dates: start: 2005
  6. HCTZ [Concomitant]
     Indication: HYPERTENSION
     Dosage: UNK
     Route: 065
     Dates: start: 20080612
  7. RANIBIZUMAB [Suspect]
     Indication: DIABETIC RETINAL OEDEMA
     Dosage: UNK, 1/MONTH
     Route: 031
     Dates: start: 20080805

REACTIONS (1)
  - Cerebrovascular accident [Recovered/Resolved]
